FAERS Safety Report 14628766 (Version 4)
Quarter: 2018Q3

REPORT INFORMATION
  Report Type: Spontaneous
  Country: US (occurrence: US)
  Receive Date: 20180313
  Receipt Date: 20180710
  Transmission Date: 20181010
  Serious: No
  Sender: FDA-Public Use
  Company Number: US-CELGENEUS-USA-20180301867

PATIENT
  Age: 67 Year
  Sex: Female
  Weight: 53.57 kg

DRUGS (2)
  1. OTEZLA [Suspect]
     Active Substance: APREMILAST
     Indication: PSORIASIS
     Dosage: 60 MILLIGRAM
     Route: 048
  2. OTEZLA [Suspect]
     Active Substance: APREMILAST
     Indication: PSORIASIS
     Dosage: 10 MG, 20 MG AND 30 MG
     Route: 048
     Dates: start: 2017

REACTIONS (7)
  - Fatigue [Unknown]
  - Weight decreased [Recovered/Resolved]
  - Food craving [Recovering/Resolving]
  - Blood potassium decreased [Unknown]
  - Nausea [Recovered/Resolved]
  - Depression [Recovered/Resolved]
  - Diarrhoea [Unknown]

NARRATIVE: CASE EVENT DATE: 201709
